FAERS Safety Report 10331463 (Version 1)
Quarter: 2014Q3

REPORT INFORMATION
  Report Type: Spontaneous
  Country: US (occurrence: US)
  Receive Date: 20140722
  Receipt Date: 20140722
  Transmission Date: 20150326
  Serious: No
  Sender: FDA-Public Use
  Company Number: US-PFIZER INC-2014203090

PATIENT
  Age: 39 Year
  Sex: Male

DRUGS (5)
  1. NIACIN. [Suspect]
     Active Substance: NIACIN
     Dosage: UNK
  2. VIOXX [Suspect]
     Active Substance: ROFECOXIB
     Dosage: UNK
  3. BEXTRA [Suspect]
     Active Substance: VALDECOXIB
     Dosage: UNK
  4. CELEBREX [Suspect]
     Active Substance: CELECOXIB
     Dosage: UNK
  5. TORADOL [Suspect]
     Active Substance: KETOROLAC TROMETHAMINE
     Dosage: UNK

REACTIONS (1)
  - Drug hypersensitivity [Unknown]
